FAERS Safety Report 5406313-9 (Version None)
Quarter: 2007Q3

REPORT INFORMATION
  Report Type: 
  Country: None (occurrence: None)
  Receive Date: 20070806
  Receipt Date: 20070730
  Transmission Date: 20080115
  Serious: Yes (Hospitalization)
  Sender: FDA-Public Use
  Company Number: JP-SANOFI-SYNTHELABO-A01200707025

PATIENT
  Sex: Male
  Weight: 70 kg

DRUGS (4)
  1. BASEN [Concomitant]
     Indication: DRUG USE FOR UNKNOWN INDICATION
     Route: 048
     Dates: start: 20050509
  2. MUCOSTA [Concomitant]
     Indication: GASTRITIS
     Route: 048
     Dates: start: 20070420
  3. PLAVIX [Suspect]
     Indication: CEREBRAL INFARCTION
     Route: 048
     Dates: start: 20070326
  4. KETAS [Concomitant]
     Indication: CEREBRAL INFARCTION
     Route: 048
     Dates: start: 20040420

REACTIONS (3)
  - CATARACT [None]
  - GLAUCOMA [None]
  - VISUAL ACUITY REDUCED [None]
